FAERS Safety Report 9698335 (Version 2)
Quarter: 2013Q4

REPORT INFORMATION
  Report Type: Spontaneous
  Country: US (occurrence: US)
  Receive Date: 20131120
  Receipt Date: 20131120
  Transmission Date: 20140711
  Serious: No
  Sender: FDA-Public Use
  Company Number: US-VERTEX PHARMACEUTICALS INC-2013-010977

PATIENT
  Age: 65 Year
  Sex: Male
  Weight: 94.33 kg

DRUGS (5)
  1. INCIVEK [Suspect]
     Indication: HEPATITIS C
     Dosage: 750 MG, TID
     Route: 048
     Dates: start: 20131003
  2. RIBAVIRIN [Suspect]
     Indication: HEPATITIS C
     Dosage: 6 DF, QD
     Route: 048
     Dates: start: 20131003
  3. RIBAVIRIN [Suspect]
     Dosage: 3 DF, QD
     Route: 048
     Dates: start: 201310
  4. PEGASYS [Suspect]
     Indication: HEPATITIS C
     Dosage: 180 ?G, QW
     Route: 058
     Dates: start: 20131003
  5. PEGASYS [Suspect]
     Dosage: 90 ?G, QW
     Route: 058
     Dates: start: 201310

REACTIONS (9)
  - Headache [Not Recovered/Not Resolved]
  - Temperature intolerance [Not Recovered/Not Resolved]
  - Malaise [Not Recovered/Not Resolved]
  - Psoriasis [Unknown]
  - Pain [Not Recovered/Not Resolved]
  - Haemoglobin abnormal [Unknown]
  - Skin ulcer [Unknown]
  - Constipation [Not Recovered/Not Resolved]
  - Drug dose omission [Unknown]
